FAERS Safety Report 22104205 (Version 1)
Quarter: 2023Q1

REPORT INFORMATION
  Report Type: Spontaneous
  Country: US (occurrence: US)
  Receive Date: 20230316
  Receipt Date: 20230316
  Transmission Date: 20230417
  Serious: No
  Sender: FDA-Public Use
  Company Number: US-SMITH AND NEPHEW, INC-2022SMT00155

PATIENT
  Sex: Male
  Weight: 107.94 kg

DRUGS (3)
  1. COLLAGENASE SANTYL [Suspect]
     Active Substance: COLLAGENASE CLOSTRIDIUM HISTOLYTICUM
     Indication: Wound infection
     Dosage: UNK, ONCE, APPLIED TO THE RIGHT LOWER LEG
     Route: 061
     Dates: start: 20220909, end: 20220909
  2. SILVADENE [Suspect]
     Active Substance: SILVER SULFADIAZINE
     Dosage: UNK, APPLIED TO THE WOUND AS DIRECTED
     Route: 061
  3. LIDOCAINE [Suspect]
     Active Substance: LIDOCAINE
     Dosage: UNK, APPLIED TO THE WOUND AS DIRECTED
     Route: 061

REACTIONS (3)
  - Application site vesicles [Recovering/Resolving]
  - Application site pain [Recovered/Resolved]
  - Drug interaction [Recovered/Resolved]

NARRATIVE: CASE EVENT DATE: 20220909
